FAERS Safety Report 9801023 (Version 1)
Quarter: 2014Q1

REPORT INFORMATION
  Report Type: Spontaneous
  Country: US (occurrence: US)
  Receive Date: 20140107
  Receipt Date: 20140107
  Transmission Date: 20141002
  Serious: Yes (Other)
  Sender: FDA-Public Use
  Company Number: US-UCBSA-107601

PATIENT
  Sex: 0

DRUGS (1)
  1. KEPPRA [Suspect]
     Dosage: UNKNOWN
     Route: 064

REACTIONS (2)
  - Renal impairment [Not Recovered/Not Resolved]
  - Foetal exposure during pregnancy [Recovered/Resolved]
